FAERS Safety Report 26126889 (Version 1)
Quarter: 2025Q4

REPORT INFORMATION
  Report Type: Spontaneous
  Country: AU (occurrence: AU)
  Receive Date: 20251205
  Receipt Date: 20251205
  Transmission Date: 20260118
  Serious: Yes (Other)
  Sender: HILL DERMACEUTICALS, INC.
  Company Number: AU-Hill Dermaceuticals, Inc.-2189947

PATIENT
  Age: 4 Decade
  Sex: Male

DRUGS (1)
  1. TOLAK [Suspect]
     Active Substance: FLUOROURACIL

REACTIONS (2)
  - Anaphylactic reaction [Unknown]
  - Reaction to excipient [Unknown]
